FAERS Safety Report 16145944 (Version 1)
Quarter: 2019Q2

REPORT INFORMATION
  Report Type: Spontaneous
  Country: GB (occurrence: IE)
  Receive Date: 20190402
  Receipt Date: 20190402
  Transmission Date: 20190711
  Serious: Yes (Hospitalization)
  Sender: FDA-Public Use
  Company Number: GB-ROCHE-2294326

PATIENT
  Age: 14 Year
  Sex: Female

DRUGS (1)
  1. OMALIZUMAB. [Suspect]
     Active Substance: OMALIZUMAB
     Indication: PRODUCT USED FOR UNKNOWN INDICATION
     Route: 065

REACTIONS (3)
  - Pyrexia [Unknown]
  - Paraesthesia [Recovered/Resolved]
  - Tonsillitis bacterial [Unknown]

NARRATIVE: CASE EVENT DATE: 20190314
